FAERS Safety Report 8510117-8 (Version None)
Quarter: 2012Q3

REPORT INFORMATION
  Report Type: 
  Country: None (occurrence: None)
  Receive Date: 20120713
  Receipt Date: 20120704
  Transmission Date: 20120928
  Serious: Yes (Hospitalization)
  Sender: FDA-Public Use
  Company Number: SE-ASTRAZENECA-2012SE45570

PATIENT
  Age: 8 Year
  Sex: Female

DRUGS (2)
  1. TEGRETOL [Concomitant]
     Route: 048
  2. PROPOFOL [Suspect]
     Route: 065
     Dates: start: 20090226

REACTIONS (3)
  - COUGH [None]
  - MUSCLE CONTRACTIONS INVOLUNTARY [None]
  - OBSTRUCTIVE AIRWAYS DISORDER [None]
